FAERS Safety Report 5113774-1 (Version None)
Quarter: 2006Q3

REPORT INFORMATION
  Report Type: 
  Country: None (occurrence: None)
  Receive Date: 20060925
  Receipt Date: 20060918
  Transmission Date: 20061208
  Serious: Yes (Other)
  Sender: FDA-Public Use
  Company Number: US-AVENTIS-200617852US

PATIENT
  Sex: Female

DRUGS (4)
  1. LANTUS [Suspect]
     Indication: DIABETES MELLITUS NON-INSULIN-DEPENDENT
     Route: 058
     Dates: start: 20020101
  2. PROCARDIA XL [Concomitant]
     Dosage: DOSE: UNKNOWN
  3. ZESTRIL [Concomitant]
     Dosage: DOSE: UNKNOWN
  4. COUMADIN [Concomitant]
     Dosage: DOSE: UNKNOWN

REACTIONS (1)
  - ATRIAL FIBRILLATION [None]
